FAERS Safety Report 22267531 (Version 3)
Quarter: 2024Q3

REPORT INFORMATION
  Report Type: Spontaneous
  Country: US (occurrence: US)
  Receive Date: 20230429
  Receipt Date: 20240820
  Transmission Date: 20241017
  Serious: No
  Sender: PFIZER
  Company Number: US-PFIZER INC-PV202200120185

PATIENT
  Age: 87 Year
  Sex: Female

DRUGS (1)
  1. IBRANCE [Suspect]
     Active Substance: PALBOCICLIB
     Dosage: 75 MG, CYCLIC (DAILY FOR 21 DAYS)
     Route: 048

REACTIONS (2)
  - Dental care [Unknown]
  - Gait inability [Unknown]
